FAERS Safety Report 8836034 (Version 1)
Quarter: 2012Q4

REPORT INFORMATION
  Report Type: Report from Study
  Country: US (occurrence: US)
  Receive Date: 20121011
  Receipt Date: 20121011
  Transmission Date: 20130627
  Serious: Yes (Life-Threatening, Hospitalization)
  Sender: FDA-Public Use
  Company Number: US-009507513-1010USA00475

PATIENT
  Age: 52 Year
  Sex: Male
  Weight: 101.3 kg

DRUGS (5)
  1. HEXADROL TABLETS [Suspect]
     Indication: MULTIPLE MYELOMA
     Dosage: day 1,2,3,4,8,9,11,12 per cycle
     Route: 048
     Dates: start: 20100913, end: 20100923
  2. HEXADROL TABLETS [Suspect]
     Dosage: day 1,2,4,5,8,9,11,12 per cycle
     Route: 048
     Dates: start: 20101102, end: 20101112
  3. THALIDOMIDE [Suspect]
     Indication: MULTIPLE MYELOMA
     Dosage: qd 1-21 per cycle
     Route: 048
     Dates: start: 20100913, end: 20100923
  4. VELCADE [Suspect]
     Indication: MULTIPLE MYELOMA
     Dosage: days 1,4,8,11 per cycle
     Route: 042
     Dates: start: 20100913, end: 20100923
  5. VELCADE [Suspect]
     Dosage: days 1,4,8,11 per cycle
     Route: 042
     Dates: start: 20101102, end: 20101112

REACTIONS (8)
  - Pain in extremity [Unknown]
  - Vomiting [Unknown]
  - Diarrhoea [Unknown]
  - Hypotension [Unknown]
  - Anaemia [Unknown]
  - Haematochezia [Unknown]
  - Asthenia [Unknown]
  - Pneumonia [Recovered/Resolved]
